FAERS Safety Report 14721142 (Version 1)
Quarter: 2018Q2

REPORT INFORMATION
  Report Type: Spontaneous
  Country: FR (occurrence: FR)
  Receive Date: 20180405
  Receipt Date: 20180405
  Transmission Date: 20180711
  Serious: Yes (Hospitalization)
  Sender: FDA-Public Use
  Company Number: FR-EISAI MEDICAL RESEARCH-EC-2018-037715

PATIENT
  Age: 15 Year
  Sex: Female
  Weight: 37.4 kg

DRUGS (3)
  1. ZONEGRAN [Concomitant]
     Active Substance: ZONISAMIDE
     Indication: EPILEPSY
     Dosage: UNKNOWN
     Route: 048
  2. FYCOMPA [Suspect]
     Active Substance: PERAMPANEL
     Indication: EPILEPSY
     Route: 048
     Dates: start: 20180317, end: 201803
  3. FYCOMPA [Suspect]
     Active Substance: PERAMPANEL
     Dosage: DOSE REDUCED
     Route: 048
     Dates: start: 201803

REACTIONS (2)
  - Miosis [Unknown]
  - Pupils unequal [Unknown]

NARRATIVE: CASE EVENT DATE: 20180317
